FAERS Safety Report 4685598-0 (Version None)
Quarter: 2005Q2

REPORT INFORMATION
  Report Type: 
  Country: None (occurrence: None)
  Receive Date: 20050608
  Receipt Date: 20050524
  Transmission Date: 20051028
  Serious: Yes (Hospitalization)
  Sender: FDA-Public Use
  Company Number: 167-20785-05050405

PATIENT
  Age: 78 Year
  Sex: Female

DRUGS (8)
  1. THALIDOMIDE - PHARMION (THALIDOMIDE) (50 MILLIGRAM, CAPSULES [Suspect]
     Indication: SMALL CELL LUNG CANCER STAGE UNSPECIFIED
     Dosage: 100 MG, DAILY, ORAL
     Route: 048
     Dates: start: 20050429
  2. SPIRIVA [Concomitant]
  3. QUININE SULFATE(QUININE) [Concomitant]
  4. BRICANYL [Concomitant]
  5. FLIXOTIDE (FLUTICASONE PROPIOANTE) [Concomitant]
  6. CARBOPLATIN [Suspect]
     Indication: SMALL CELL LUNG CANCER STAGE UNSPECIFIED
  7. ETOPOSIDE [Suspect]
     Indication: SMALL CELL LUNG CANCER STAGE UNSPECIFIED
  8. EPROSARTAN (EPROSARTAN MESILATE) [Suspect]
     Indication: HYPERTENSION
     Dosage: 300 MG, DAILY, ORAL
     Route: 048

REACTIONS (4)
  - CIRCULATORY COLLAPSE [None]
  - FALL [None]
  - ORTHOSTATIC HYPOTENSION [None]
  - RIB FRACTURE [None]
